FAERS Safety Report 14195463 (Version 1)
Quarter: 2017Q4

REPORT INFORMATION
  Report Type: Spontaneous
  Country: US (occurrence: None)
  Receive Date: 20171116
  Receipt Date: 20171116
  Transmission Date: 20180321
  Serious: Yes (Hospitalization)
  Sender: FDA-Public Use
  Company Number: None

PATIENT
  Age: 61 Year
  Sex: Male
  Weight: 117 kg

DRUGS (18)
  1. DEXILANT [Concomitant]
     Active Substance: DEXLANSOPRAZOLE
  2. LOSARTAN. [Concomitant]
     Active Substance: LOSARTAN
  3. ZANTAC [Concomitant]
     Active Substance: RANITIDINE HYDROCHLORIDE
  4. HARVONI [Suspect]
     Active Substance: LEDIPASVIR\SOFOSBUVIR
     Indication: HEPATITIS C
     Dosage: 10/28/2017-01/20/2018
     Route: 048
     Dates: start: 20171028
  5. OMEPRAZOLE. [Concomitant]
     Active Substance: OMEPRAZOLE
  6. ALBUTEROL. [Concomitant]
     Active Substance: ALBUTEROL
  7. AMLODIPINE [Concomitant]
     Active Substance: AMLODIPINE BESYLATE
  8. ASPIRIN. [Concomitant]
     Active Substance: ASPIRIN
  9. BENZONATATE. [Concomitant]
     Active Substance: BENZONATATE
  10. TUMS [Concomitant]
     Active Substance: CALCIUM CARBONATE
  11. APIDRA [Concomitant]
     Active Substance: INSULIN GLULISINE
  12. ATORVASTATIN [Concomitant]
     Active Substance: ATORVASTATIN
  13. KETOCONAZOLE. [Concomitant]
     Active Substance: KETOCONAZOLE
  14. ADVAIR HFA [Concomitant]
     Active Substance: FLUTICASONE PROPIONATE\SALMETEROL XINAFOATE
  15. FLUTICASONE. [Concomitant]
     Active Substance: FLUTICASONE
  16. TRAZODONE [Concomitant]
     Active Substance: TRAZODONE HYDROCHLORIDE
  17. TRESIBA [Concomitant]
     Active Substance: INSULIN DEGLUDEC
  18. VIAGRA [Concomitant]
     Active Substance: SILDENAFIL CITRATE

REACTIONS (5)
  - Intentional self-injury [None]
  - Drug dose omission [None]
  - Economic problem [None]
  - Feeling of despair [None]
  - Gun shot wound [None]

NARRATIVE: CASE EVENT DATE: 20171107
